FAERS Safety Report 25366811 (Version 1)
Quarter: 2025Q2

REPORT INFORMATION
  Report Type: Spontaneous
  Country: GB (occurrence: GB)
  Receive Date: 20250528
  Receipt Date: 20250528
  Transmission Date: 20250717
  Serious: Yes (Other)
  Sender: CHATTEM
  Company Number: None

PATIENT

DRUGS (1)
  1. FEXOFENADINE [Suspect]
     Active Substance: FEXOFENADINE HYDROCHLORIDE
     Indication: Product used for unknown indication

REACTIONS (3)
  - Panic attack [Recovering/Resolving]
  - Anxiety [Recovering/Resolving]
  - Nightmare [Recovering/Resolving]
